FAERS Safety Report 5826388-2 (Version None)
Quarter: 2008Q3

REPORT INFORMATION
  Report Type: 
  Country: None (occurrence: None)
  Receive Date: 20080729
  Receipt Date: 20080728
  Transmission Date: 20090109
  Serious: Yes (Other)
  Sender: FDA-Public Use
  Company Number: JP-BOEHRINGER INGELHEIM GMBH, GERMANY-2008-BP-11747NB

PATIENT
  Age: 43 Year
  Sex: Male

DRUGS (5)
  1. MICARDIS [Suspect]
     Indication: HYPERTENSION
     Route: 048
     Dates: start: 20080630, end: 20080714
  2. ALLOPURINOL [Concomitant]
     Indication: GASTRIC ULCER
     Route: 048
     Dates: start: 20080630
  3. PARIET [Concomitant]
     Indication: GASTRIC ULCER
     Route: 048
     Dates: start: 20080630
  4. NORVASC [Concomitant]
     Indication: HYPERTENSION
     Route: 048
     Dates: start: 20080630
  5. HYPOCA [Concomitant]
     Indication: HYPERTENSION
     Route: 048
     Dates: start: 20080630

REACTIONS (1)
  - DERMATITIS EXFOLIATIVE [None]
